FAERS Safety Report 6866145-1 (Version None)
Quarter: 2010Q3

REPORT INFORMATION
  Report Type: 
  Country: None (occurrence: None)
  Receive Date: 20100722
  Receipt Date: 20100709
  Transmission Date: 20110219
  Serious: Yes (Other)
  Sender: FDA-Public Use
  Company Number: US-ELI_LILLY_AND_COMPANY-US201007003558

PATIENT
  Sex: Female

DRUGS (10)
  1. FORTEO [Suspect]
     Indication: OSTEOPOROSIS
     Dosage: 20 UG, DAILY (1/D)
  2. ISOSORBIDE [Concomitant]
     Dosage: 5 MG, 4/D
  3. OMEPRAZOLE [Concomitant]
     Dosage: 20 MG, DAILY (1/D)
  4. TRIAMTERENE [Concomitant]
     Dosage: UNK, DAILY (1/D)
  5. FEXOFENADINE [Concomitant]
     Dosage: 180 MG, DAILY (1/D)
  6. LEVOTHYROXINE SODIUM [Concomitant]
     Dosage: 75 UG, DAILY (1/D)
  7. ADVAIR DISKUS 100/50 [Concomitant]
     Dosage: 2 D/F, 2/D
  8. ALBUTEROL [Concomitant]
     Dosage: UNK, AS NEEDED
  9. SPIRIVA [Concomitant]
     Dosage: UNK, DAILY (1/D)
  10. ASPIRIN [Concomitant]
     Dosage: 81 MG, DAILY (1/D)

REACTIONS (8)
  - BASAL CELL CARCINOMA [None]
  - DRUG INEFFECTIVE [None]
  - FALL [None]
  - HIP FRACTURE [None]
  - LIMB DISCOMFORT [None]
  - MUSCLE SPASMS [None]
  - PARAESTHESIA [None]
  - SQUAMOUS CELL CARCINOMA OF SKIN [None]
